FAERS Safety Report 17546898 (Version 3)
Quarter: 2020Q2

REPORT INFORMATION
  Report Type: Spontaneous
  Country: US (occurrence: US)
  Receive Date: 20200316
  Receipt Date: 20200602
  Transmission Date: 20200713
  Serious: Yes (Life-Threatening, Hospitalization)
  Sender: FDA-Public Use
  Company Number: US-JNJFOC-20200307147

PATIENT
  Sex: Male
  Weight: 81.72 kg

DRUGS (6)
  1. TREMFYA [Suspect]
     Active Substance: GUSELKUMAB
  2. TRAZODONE [Concomitant]
     Active Substance: TRAZODONE HYDROCHLORIDE
     Indication: SLEEP DISORDER
     Dosage: EVERY NIGHT AT BEDTIME (QHS)
  3. AMBIEN [Concomitant]
     Active Substance: ZOLPIDEM TARTRATE
     Indication: SLEEP DISORDER
     Dosage: WHEN NECESSARY (PRN)
     Route: 065
  4. XANAX [Concomitant]
     Active Substance: ALPRAZOLAM
     Indication: ANXIETY
     Dosage: WHEN NECESSARY (PRN)
     Route: 065
  5. TREMFYA [Suspect]
     Active Substance: GUSELKUMAB
     Indication: PSORIASIS
     Route: 058
     Dates: start: 20190205, end: 20200303
  6. TREMFYA [Suspect]
     Active Substance: GUSELKUMAB

REACTIONS (1)
  - Hodgkin^s disease [Recovering/Resolving]
